FAERS Safety Report 10763143 (Version 1)
Quarter: 2015Q1

REPORT INFORMATION
  Report Type: Other
  Country: US (occurrence: US)
  Receive Date: 20150204
  Receipt Date: 20150204
  Transmission Date: 20150721
  Serious: No
  Sender: FDA-Public Use
  Company Number: US-ACORDA-ACO_101614_2014

PATIENT
  Sex: Female

DRUGS (1)
  1. AMPYRA [Suspect]
     Active Substance: DALFAMPRIDINE
     Indication: PRODUCT USED FOR UNKNOWN INDICATION
     Dosage: 10 MG, BID
     Route: 065

REACTIONS (7)
  - Contusion [Unknown]
  - Abasia [Unknown]
  - Fall [Unknown]
  - Gait disturbance [Unknown]
  - Bursitis [Unknown]
  - Stress [Unknown]
  - Walking aid user [Unknown]
